FAERS Safety Report 18246105 (Version 2)
Quarter: 2020Q3

REPORT INFORMATION
  Report Type: Spontaneous
  Country: US (occurrence: US)
  Receive Date: 20200909
  Receipt Date: 20200914
  Transmission Date: 20201103
  Serious: Yes (Life-Threatening, Hospitalization, Other)
  Sender: FDA-Public Use
  Company Number: US-STRIDES ARCOLAB LIMITED-2020SP010634

PATIENT
  Age: 5 Decade
  Sex: Female

DRUGS (6)
  1. ANAKINRA [Concomitant]
     Active Substance: ANAKINRA
     Indication: JUVENILE IDIOPATHIC ARTHRITIS
     Dosage: 100 MILLIGRAM PER DAY
     Route: 058
  2. HYDROXYCHLOROQUINE [Suspect]
     Active Substance: HYDROXYCHLOROQUINE
     Dosage: RESTARTED
     Route: 065
  3. HYDROCORTISONE. [Suspect]
     Active Substance: HYDROCORTISONE
     Indication: JUVENILE IDIOPATHIC ARTHRITIS
     Dosage: 20 MILLIGRAM, EVERY MORNING
     Route: 065
  4. HYDROCORTISONE. [Suspect]
     Active Substance: HYDROCORTISONE
     Indication: ADRENAL INSUFFICIENCY
     Dosage: 10 MILLIGRAM,QD (IN THE AFTERNOON)
     Route: 065
  5. HYDROXYCHLOROQUINE [Suspect]
     Active Substance: HYDROXYCHLOROQUINE
     Dosage: 200 MILLIGRAM, EVERY 12 HRS (FROM AGE 40 TO 42)
     Route: 065
  6. HYDROXYCHLOROQUINE [Suspect]
     Active Substance: HYDROXYCHLOROQUINE
     Indication: JUVENILE IDIOPATHIC ARTHRITIS
     Dosage: PROLONGED HIATUS (FROM AGE 40 TO 42 )
     Route: 065

REACTIONS (15)
  - Pneumothorax [Recovered/Resolved]
  - Cervical vertebral fracture [Recovered/Resolved]
  - Encephalopathy [Recovered/Resolved]
  - Muscle injury [Recovered/Resolved]
  - Fall [Recovered/Resolved]
  - Embolic stroke [Recovered/Resolved]
  - Respiratory failure [Recovered/Resolved]
  - Tibia fracture [Recovered/Resolved]
  - Respiratory acidosis [Recovered/Resolved]
  - Myopathy [Recovered/Resolved]
  - Diaphragm muscle weakness [Recovered/Resolved]
  - Pneumonia [Unknown]
  - Subarachnoid haemorrhage [Recovered/Resolved]
  - Encephalomalacia [Recovered/Resolved]
  - Hypercapnia [Recovered/Resolved]
